FAERS Safety Report 21927115 (Version 1)
Quarter: 2023Q1

REPORT INFORMATION
  Report Type: Spontaneous
  Country: US (occurrence: US)
  Receive Date: 20230130
  Receipt Date: 20230130
  Transmission Date: 20230418
  Serious: No
  Sender: FDA-Public Use
  Company Number: US-SAREPTA THERAPEUTICS INC.-SRP2022-002438

PATIENT
  Age: 21 Year
  Sex: Male
  Weight: 36.281 kg

DRUGS (4)
  1. AMONDYS 45 [Suspect]
     Active Substance: CASIMERSEN
     Indication: Duchenne muscular dystrophy
     Dosage: 1170 MILLIGRAM, WEEKLY
     Route: 042
     Dates: start: 20220104, end: 20220727
  2. AMONDYS 45 [Suspect]
     Active Substance: CASIMERSEN
     Dosage: 1170 MILLIGRAM, WEEKLY
     Dates: start: 20220817
  3. CARVEDILOL [Concomitant]
     Active Substance: CARVEDILOL
     Indication: Product used for unknown indication
     Dosage: UNK
  4. ENTRESTO [Concomitant]
     Active Substance: SACUBITRIL\VALSARTAN
     Indication: Product used for unknown indication
     Dosage: UNK

REACTIONS (2)
  - COVID-19 [Recovered/Resolved]
  - Product dose omission issue [Unknown]

NARRATIVE: CASE EVENT DATE: 20220803
